FAERS Safety Report 4487983-9 (Version None)
Quarter: 2004Q4

REPORT INFORMATION
  Report Type: 
  Country: None (occurrence: None)
  Receive Date: 20041028
  Receipt Date: 20041019
  Transmission Date: 20050328
  Serious: Yes (Hospitalization, Disabling)
  Sender: FDA-Public Use
  Company Number: US-MERCK-0410USA02662

PATIENT
  Age: 55 Year
  Sex: Female

DRUGS (1)
  1. VIOXX [Suspect]
     Route: 048

REACTIONS (7)
  - ABNORMAL BEHAVIOUR [None]
  - ADVERSE EVENT [None]
  - ASTHENIA [None]
  - CONFUSIONAL STATE [None]
  - DECREASED ACTIVITY [None]
  - HYPERTENSION [None]
  - STRESS SYMPTOMS [None]
